FAERS Safety Report 8884302 (Version 2)
Quarter: 2013Q1

REPORT INFORMATION
  Report Type: Spontaneous
  Country: US (occurrence: US)
  Receive Date: 20121104
  Receipt Date: 20130102
  Transmission Date: 20140127
  Serious: Yes (Other)
  Sender: FDA-Public Use
  Company Number: US-ASTRAZENECA-2004UW14861

PATIENT
  Age: 79 Year
  Sex: Female
  Weight: 83.9 kg

DRUGS (5)
  1. CRESTOR [Suspect]
     Indication: BLOOD CHOLESTEROL INCREASED
     Route: 048
     Dates: start: 2004
  2. ARIMIDEX [Suspect]
     Route: 048
  3. BENICAR [Concomitant]
  4. METFORMIN [Concomitant]
  5. BEXTRA [Concomitant]

REACTIONS (4)
  - Myocardial infarction [Unknown]
  - Mental impairment [Unknown]
  - Muscle spasms [Unknown]
  - Drug dose omission [Unknown]
